FAERS Safety Report 10642496 (Version 2)
Quarter: 2014Q4

REPORT INFORMATION
  Report Type: Spontaneous
  Country: US (occurrence: None)
  Receive Date: 20141208
  Receipt Date: 20141222
  Transmission Date: 20150529
  Serious: Yes (Hospitalization)
  Sender: FDA-Public Use
  Company Number: US-001483

PATIENT
  Age: 56 Year
  Sex: Female

DRUGS (1)
  1. GATTEX [Suspect]
     Active Substance: TEDUGLUTIDE\WATER
     Indication: SHORT-BOWEL SYNDROME
     Dosage: [DF]
     Route: 058
     Dates: start: 20140729, end: 201411

REACTIONS (4)
  - Flatulence [None]
  - Weight decreased [None]
  - Stomatitis [None]
  - Dehydration [None]

NARRATIVE: CASE EVENT DATE: 2014
